FAERS Safety Report 11462216 (Version 1)
Quarter: 2015Q3

REPORT INFORMATION
  Report Type: Spontaneous
  Country: US (occurrence: US)
  Receive Date: 20150831
  Receipt Date: 20150831
  Transmission Date: 20151125
  Serious: No
  Sender: FDA-Public Use
  Company Number: US-ELI_LILLY_AND_COMPANY-US200912004567

PATIENT
  Sex: Female

DRUGS (4)
  1. CYMBALTA [Suspect]
     Active Substance: DULOXETINE HYDROCHLORIDE
     Indication: ANXIETY
     Dosage: 30 MG, DAILY (1/D)
  2. CYMBALTA [Suspect]
     Active Substance: DULOXETINE HYDROCHLORIDE
     Dosage: 30 MG, DAILY (1/D)
  3. VALIUM [Concomitant]
     Active Substance: DIAZEPAM
  4. DESVENLAFAXINE. [Concomitant]
     Active Substance: DESVENLAFAXINE

REACTIONS (14)
  - Tooth disorder [Unknown]
  - Tooth extraction [Recovered/Resolved]
  - Gingival recession [Recovered/Resolved]
  - Tooth loss [Unknown]
  - Tooth infection [Unknown]
  - Fungal infection [Recovered/Resolved]
  - Insomnia [Unknown]
  - Drug effect incomplete [Unknown]
  - Dental caries [Recovered/Resolved]
  - Weight decreased [Unknown]
  - Ovarian cyst [Unknown]
  - Uterine leiomyoma [Unknown]
  - Hypoaesthesia [Recovered/Resolved]
  - Hypoaesthesia oral [Unknown]
